FAERS Safety Report 17150367 (Version 1)
Quarter: 2019Q4

REPORT INFORMATION
  Report Type: Spontaneous
  Country: US (occurrence: US)
  Receive Date: 20191213
  Receipt Date: 20191213
  Transmission Date: 20200122
  Serious: No
  Sender: FDA-Public Use
  Company Number: US-009507513-1911USA007037

PATIENT
  Age: 22 Year
  Sex: Female
  Weight: 58.05 kg

DRUGS (3)
  1. NEXPLANON [Suspect]
     Active Substance: ETONOGESTREL
     Dosage: UNK
     Route: 059
     Dates: end: 20191101
  2. NEXPLANON [Suspect]
     Active Substance: ETONOGESTREL
     Dosage: ANOTHER IMPANT UNIT
     Route: 059
     Dates: start: 20191101
  3. NEXPLANON [Suspect]
     Active Substance: ETONOGESTREL
     Dosage: 1 IMPLANT ROD, EVERY THREE YEARS
     Route: 059
     Dates: start: 20191101, end: 20191101

REACTIONS (3)
  - Device difficult to use [Recovered/Resolved]
  - Complication of device insertion [Recovered/Resolved]
  - Product quality issue [Unknown]

NARRATIVE: CASE EVENT DATE: 20191101
